FAERS Safety Report 7341171-7 (Version None)
Quarter: 2011Q1

REPORT INFORMATION
  Report Type: 
  Country: None (occurrence: None)
  Receive Date: 20110309
  Receipt Date: 20110301
  Transmission Date: 20110831
  Serious: Yes (Other)
  Sender: FDA-Public Use
  Company Number: B0701063A

PATIENT
  Sex: Male

DRUGS (2)
  1. CRESTOR [Concomitant]
     Dates: start: 20101001
  2. SORIATANE [Suspect]
     Indication: PSORIASIS
     Dosage: 10MG PER DAY
     Route: 048
     Dates: start: 20041001, end: 20101201

REACTIONS (1)
  - VENTRICULAR TACHYCARDIA [None]
